FAERS Safety Report 7685892-5 (Version None)
Quarter: 2011Q3

REPORT INFORMATION
  Report Type: 
  Country: None (occurrence: None)
  Receive Date: 20110816
  Receipt Date: 20110808
  Transmission Date: 20111222
  Serious: Yes (Hospitalization)
  Sender: FDA-Public Use
  Company Number: US-BAXTER-2011BH026254

PATIENT
  Age: 83 Year
  Sex: Male
  Weight: 81 kg

DRUGS (1)
  1. RECOMBINATE [Suspect]
     Indication: HAEMOPHILIA
     Route: 065
     Dates: start: 20060101, end: 20060101

REACTIONS (1)
  - HAEMATURIA [None]
